FAERS Safety Report 9252834 (Version 1)
Quarter: 2013Q2

REPORT INFORMATION
  Report Type: Spontaneous
  Country: US (occurrence: US)
  Receive Date: 20130424
  Receipt Date: 20130424
  Transmission Date: 20140414
  Serious: No
  Sender: FDA-Public Use
  Company Number: US-BAUSCH-2012BL003898

PATIENT
  Age: 25 Year
  Sex: Female

DRUGS (3)
  1. LOTEMAX (LOTEPREDNOL ETABONATE OPHTHALMIC SUSPENSION 0.5%) [Suspect]
     Indication: POSTOPERATIVE CARE
     Dosage: 1 DROP IN EACH EYE THREE TIMES DAILY
     Route: 047
     Dates: start: 201203
  2. LOTEPREDNOL ETABONATE OPHTHALMIC OINTMENT 0.5% [Suspect]
     Indication: POSTOPERATIVE CARE
     Dosage: AT BEDTIME
     Route: 047
     Dates: start: 201203
  3. CICLOSPORIN [Concomitant]
     Indication: POSTOPERATIVE CARE

REACTIONS (1)
  - Alopecia [Not Recovered/Not Resolved]
